FAERS Safety Report 16235024 (Version 1)
Quarter: 2019Q2

REPORT INFORMATION
  Report Type: Spontaneous
  Country: US (occurrence: US)
  Receive Date: 20190424
  Receipt Date: 20190424
  Transmission Date: 20190711
  Serious: No
  Sender: FDA-Public Use
  Company Number: US-AQUA PHARMACEUTICALS-2019AQU000091

PATIENT

DRUGS (2)
  1. FABIOR [Suspect]
     Active Substance: TAZAROTENE
     Indication: PRODUCT USED FOR UNKNOWN INDICATION
     Route: 061
  2. SEYSARA [Suspect]
     Active Substance: SARECYCLINE HYDROCHLORIDE
     Indication: PRODUCT USED FOR UNKNOWN INDICATION
     Dosage: 100 MG, UNK
     Route: 061

REACTIONS (1)
  - Rash [Unknown]
